FAERS Safety Report 8580849-4 (Version None)
Quarter: 2012Q3

REPORT INFORMATION
  Report Type: 
  Country: None (occurrence: None)
  Receive Date: 20120726
  Receipt Date: 20120701
  Transmission Date: 20120928
  Serious: Yes (Life-Threatening)
  Sender: FDA-Public Use
  Company Number: 1340971

PATIENT
  Age: 24 Year
  Sex: Male
  Weight: 60 kg

DRUGS (3)
  1. CLARITHROMYCIN [Concomitant]
  2. ROCEPHIN [Concomitant]
  3. VANCOMYCIN HYDROCHLORIDE [Suspect]
     Indication: PRODUCT USED FOR UNKNOWN INDICATION

REACTIONS (4)
  - RESPIRATORY DISTRESS [None]
  - PRURITUS [None]
  - TACHYCARDIA [None]
  - ERYTHEMA [None]
